FAERS Safety Report 6153463-8 (Version None)
Quarter: 2009Q2

REPORT INFORMATION
  Report Type: 
  Country: None (occurrence: None)
  Receive Date: 20090409
  Receipt Date: 20090409
  Transmission Date: 20091009
  Serious: Yes (Hospitalization)
  Sender: FDA-Public Use
  Company Number: None

PATIENT
  Sex: Female
  Weight: 90.7194 kg

DRUGS (2)
  1. PLAVIX [Suspect]
     Indication: CEREBROVASCULAR ACCIDENT
     Dosage: 75 MG DAILY 1 TAB. ORAL
     Route: 048
     Dates: start: 20090305
  2. PLAVIX [Suspect]
     Indication: CEREBROVASCULAR ACCIDENT
     Dosage: 75 MG DAILY 1 TAB. ORAL
     Route: 048
     Dates: start: 20090306

REACTIONS (2)
  - DOCUMENTED HYPERSENSITIVITY TO ADMINISTERED DRUG [None]
  - MEDICATION ERROR [None]
